FAERS Safety Report 21872505 (Version 1)
Quarter: 2023Q1

REPORT INFORMATION
  Report Type: Spontaneous
  Country: US (occurrence: None)
  Receive Date: 20230114
  Receipt Date: 20230114
  Transmission Date: 20230418
  Serious: Yes (Hospitalization)
  Sender: FDA-Public Use
  Company Number: None

PATIENT
  Age: 45 Year
  Sex: Female
  Weight: 63.8 kg

DRUGS (1)
  1. DULOXETINE HYDROCHLORIDE [Suspect]
     Active Substance: DULOXETINE HYDROCHLORIDE
     Dosage: OTHER QUANTITY : 2 TABLET;?
     Dates: end: 20230109

REACTIONS (10)
  - Abdominal discomfort [None]
  - Cholelithiasis [None]
  - Gallbladder polyp [None]
  - Lipase increased [None]
  - Anaemia [None]
  - Thrombocytopenia [None]
  - Mesenteric venous occlusion [None]
  - Hepatomegaly [None]
  - Nephrolithiasis [None]
  - Mesenteric vein thrombosis [None]

NARRATIVE: CASE EVENT DATE: 20230106
